FAERS Safety Report 11661701 (Version 2)
Quarter: 2015Q4

REPORT INFORMATION
  Report Type: Spontaneous
  Country: JP (occurrence: JP)
  Receive Date: 20151026
  Receipt Date: 20151026
  Transmission Date: 20160304
  Serious: Yes (Hospitalization)
  Sender: FDA-Public Use
  Company Number: JP-BAYER-2015-445544

PATIENT
  Age: 33 Year
  Sex: Female

DRUGS (2)
  1. ACETYLSALICYLIC ACID({=100 MG) [Suspect]
     Active Substance: ASPIRIN
     Indication: CARDIOLIPIN ANTIBODY POSITIVE
     Dosage: UNK
     Route: 048
  2. SAIREI-TO [Concomitant]
     Active Substance: UNSPECIFIED INGREDIENT
     Indication: CARDIOLIPIN ANTIBODY POSITIVE
     Dosage: UNK
     Route: 048

REACTIONS (4)
  - Product use issue [None]
  - Premature labour [Recovered/Resolved]
  - Uterine rupture [None]
  - Maternal exposure timing unspecified [None]
